FAERS Safety Report 4744183-2 (Version None)
Quarter: 2005Q3

REPORT INFORMATION
  Report Type: 
  Country: None (occurrence: None)
  Receive Date: 20050812
  Receipt Date: 20050708
  Transmission Date: 20060218
  Serious: Yes (Other)
  Sender: FDA-Public Use
  Company Number: PHEH2005US07626

PATIENT
  Sex: Female

DRUGS (3)
  1. ZOMETA [Suspect]
     Indication: BREAST CANCER
  2. HORMONES [Concomitant]
  3. LEVAQUIN [Suspect]
     Indication: SINUS DISORDER
     Dosage: 500 MG, UNK

REACTIONS (5)
  - DISCOMFORT [None]
  - GINGIVAL DISORDER [None]
  - OEDEMA PERIPHERAL [None]
  - OSTEONECROSIS [None]
  - SINUS DISORDER [None]
